FAERS Safety Report 6839624-0 (Version None)
Quarter: 2010Q3

REPORT INFORMATION
  Report Type: 
  Country: None (occurrence: None)
  Receive Date: 20100714
  Receipt Date: 20100714
  Transmission Date: 20110219
  Serious: Yes (Death)
  Sender: FDA-Public Use
  Company Number: None

PATIENT

DRUGS (1)
  1. CONCENTRATED TYLENOL INFANT DROPS [Suspect]

REACTIONS (7)
  - ALTERED STATE OF CONSCIOUSNESS [None]
  - CHROMATURIA [None]
  - CRYING [None]
  - IRRITABILITY [None]
  - LETHARGY [None]
  - MYDRIASIS [None]
  - SUDDEN INFANT DEATH SYNDROME [None]
